FAERS Safety Report 7700118-1 (Version None)
Quarter: 2011Q3

REPORT INFORMATION
  Report Type: 
  Country: None (occurrence: None)
  Receive Date: 20110822
  Receipt Date: 20110808
  Transmission Date: 20111222
  Serious: Yes (Other)
  Sender: FDA-Public Use
  Company Number: JP-UCBSA-038633

PATIENT
  Sex: Female

DRUGS (3)
  1. ZONISAMIDE [Concomitant]
     Route: 048
  2. KEPPRA [Suspect]
     Indication: EPILEPSY
     Route: 048
  3. PHENOBARBITAL TAB [Concomitant]

REACTIONS (3)
  - BRAIN OEDEMA [None]
  - BRAIN NEOPLASM [None]
  - GRAND MAL CONVULSION [None]
